FAERS Safety Report 13513286 (Version 1)
Quarter: 2017Q2

REPORT INFORMATION
  Report Type: Spontaneous
  Country: US (occurrence: US)
  Receive Date: 20170504
  Receipt Date: 20170504
  Transmission Date: 20170830
  Serious: Yes (Hospitalization)
  Sender: FDA-Public Use
  Company Number: None

PATIENT
  Age: 48 Year
  Sex: Male
  Weight: 68.6 kg

DRUGS (9)
  1. ZESTRIL [Concomitant]
     Active Substance: LISINOPRIL
  2. ASPIRIN. [Concomitant]
     Active Substance: ASPIRIN
  3. BETAP ACE [Concomitant]
  4. WARFARIN [Suspect]
     Active Substance: WARFARIN
     Indication: ATRIAL FIBRILLATION
     Dosage: 3MG MWFSS PO
     Route: 048
  5. WARFARIN [Suspect]
     Active Substance: WARFARIN
     Dosage: 1MG TTH PO
     Route: 048
  6. CRESTOR [Concomitant]
     Active Substance: ROSUVASTATIN CALCIUM
  7. MVI [Concomitant]
     Active Substance: VITAMINS
  8. PLAVIX [Concomitant]
     Active Substance: CLOPIDOGREL BISULFATE
  9. COLACE [Concomitant]
     Active Substance: DOCUSATE SODIUM

REACTIONS (3)
  - Hepatic function abnormal [None]
  - Liver function test abnormal [None]
  - International normalised ratio increased [None]

NARRATIVE: CASE EVENT DATE: 20161213
